FAERS Safety Report 5342569-9 (Version None)
Quarter: 2007Q2

REPORT INFORMATION
  Report Type: 
  Country: None (occurrence: None)
  Receive Date: 20070601
  Receipt Date: 20061027
  Transmission Date: 20071010
  Serious: No
  Sender: FDA-Public Use
  Company Number: A0622484A

PATIENT
  Age: 66 Year
  Sex: Male

DRUGS (1)
  1. AUGMENTIN '125' [Suspect]
     Indication: DRUG USE FOR UNKNOWN INDICATION
     Dosage: 2TSP TWICE PER DAY
     Route: 048

REACTIONS (1)
  - DIARRHOEA [None]
